FAERS Safety Report 11127392 (Version 1)
Quarter: 2015Q2

REPORT INFORMATION
  Report Type: Spontaneous
  Country: US (occurrence: None)
  Receive Date: 20150519
  Receipt Date: 20150519
  Transmission Date: 20150821
  Serious: Yes (Death)
  Sender: FDA-Public Use
  Company Number: PR9179

PATIENT
  Age: 29 Year
  Sex: Male

DRUGS (4)
  1. ACETAMINOPHEN. [Concomitant]
     Active Substance: ACETAMINOPHEN
  2. METACLOPRAMIDE [Concomitant]
     Active Substance: METOCLOPRAMIDE
  3. MORPHINE SULPHATE [Suspect]
     Active Substance: MORPHINE SULFATE
     Indication: ANALGESIC THERAPY
     Route: 042
  4. HYDROMORPHONE INJECTION 0.5MG/0.5ML HOSPIRA [Suspect]
     Active Substance: HYDROMORPHONE
     Indication: ANALGESIC THERAPY
     Route: 042

REACTIONS (9)
  - Vomiting [None]
  - Brain herniation [None]
  - Headache [None]
  - Urinary incontinence [None]
  - Nausea [None]
  - Sudden death [None]
  - Vision blurred [None]
  - Pulse absent [None]
  - Hydrocephalus [None]
